FAERS Safety Report 12413285 (Version 1)
Quarter: 2016Q2

REPORT INFORMATION
  Report Type: Report from Study
  Country: US (occurrence: US)
  Receive Date: 20160527
  Receipt Date: 20160527
  Transmission Date: 20160815
  Serious: Yes (Other)
  Sender: FDA-Public Use
  Company Number: US-ABBVIE-16K-163-1634924-00

PATIENT
  Age: 41 Year
  Sex: Male

DRUGS (3)
  1. ZOFRAN [Concomitant]
     Active Substance: ONDANSETRON HYDROCHLORIDE
     Indication: PRODUCT USED FOR UNKNOWN INDICATION
  2. MORPHINE [Concomitant]
     Active Substance: MORPHINE
     Indication: PRODUCT USED FOR UNKNOWN INDICATION
     Route: 042
  3. HUMIRA [Suspect]
     Active Substance: ADALIMUMAB
     Indication: CROHN^S DISEASE
     Route: 058
     Dates: start: 20160219

REACTIONS (4)
  - Constipation [Recovered/Resolved]
  - Dehydration [Recovered/Resolved]
  - Retching [Recovered/Resolved]
  - Abdominal pain [Recovered/Resolved]

NARRATIVE: CASE EVENT DATE: 20160507
